FAERS Safety Report 16755504 (Version 1)
Quarter: 2019Q3

REPORT INFORMATION
  Report Type: Spontaneous
  Country: JP (occurrence: JP)
  Receive Date: 20190829
  Receipt Date: 20190829
  Transmission Date: 20191005
  Serious: Yes (Other)
  Sender: FDA-Public Use
  Company Number: PHJP2019JP010773

PATIENT
  Sex: Male

DRUGS (1)
  1. GILENYA [Suspect]
     Active Substance: FINGOLIMOD HYDROCHLORIDE
     Indication: MULTIPLE SCLEROSIS RELAPSE PROPHYLAXIS
     Dosage: 0.5 MG, UNK
     Route: 048

REACTIONS (5)
  - JC polyomavirus test positive [Unknown]
  - Dysuria [Unknown]
  - Sensory disturbance [Unknown]
  - Disease progression [Unknown]
  - Multiple sclerosis [Unknown]
